FAERS Safety Report 13376643 (Version 2)
Quarter: 2017Q2

REPORT INFORMATION
  Report Type: Spontaneous
  Country: US (occurrence: US)
  Receive Date: 20170328
  Receipt Date: 20170410
  Transmission Date: 20170830
  Serious: Yes (Other)
  Sender: FDA-Public Use
  Company Number: US-AMGEN-USASP2017045988

PATIENT
  Age: 67 Year
  Sex: Female

DRUGS (5)
  1. PROLIA [Suspect]
     Active Substance: DENOSUMAB
     Indication: OSTEOPOROSIS POSTMENOPAUSAL
     Dosage: UNK
     Route: 065
     Dates: start: 20160813
  2. VITAMIN D [Concomitant]
     Active Substance: CHOLECALCIFEROL
     Dosage: 1200 MG, UNK
  3. PROLIA [Suspect]
     Active Substance: DENOSUMAB
     Dosage: UNK
     Route: 065
     Dates: start: 20170313
  4. LIQUID CALCIUM [Concomitant]
     Dosage: 2000 MG, QD
  5. LIQUID CALCIUM [Concomitant]
     Dosage: 1200 MG, UNK

REACTIONS (21)
  - Abasia [Not Recovered/Not Resolved]
  - Poisoning [Unknown]
  - Diarrhoea [Unknown]
  - Paraesthesia [Unknown]
  - Back pain [Unknown]
  - Myalgia [Unknown]
  - Asthenia [Unknown]
  - Anxiety [Unknown]
  - Influenza like illness [Unknown]
  - Muscular weakness [Not Recovered/Not Resolved]
  - Balance disorder [Unknown]
  - Formication [Unknown]
  - Nervousness [Unknown]
  - Hypersensitivity [Unknown]
  - Hypoaesthesia [Unknown]
  - Hyperreflexia [Unknown]
  - Insomnia [Unknown]
  - Nausea [Unknown]
  - Hypocalcaemia [Unknown]
  - Arthralgia [Unknown]
  - Mobility decreased [Not Recovered/Not Resolved]

NARRATIVE: CASE EVENT DATE: 20170316
